FAERS Safety Report 21317006 (Version 2)
Quarter: 2023Q1

REPORT INFORMATION
  Report Type: Spontaneous
  Country: US (occurrence: US)
  Receive Date: 20220911
  Receipt Date: 20230310
  Transmission Date: 20230417
  Serious: No
  Sender: FDA-Public Use
  Company Number: US-SA-SAC20220823000808

PATIENT
  Age: 49 Year
  Sex: Male

DRUGS (2)
  1. DUPIXENT [Suspect]
     Active Substance: DUPILUMAB
     Indication: Dermatitis atopic
     Dosage: 300MG, FREQUENCY: OTHER
     Route: 058
     Dates: start: 201708
  2. DUPIXENT [Suspect]
     Active Substance: DUPILUMAB
     Dosage: 300 MG, OTHER
     Route: 058
     Dates: start: 202208

REACTIONS (1)
  - Arthralgia [Unknown]

NARRATIVE: CASE EVENT DATE: 20220720
